FAERS Safety Report 18365860 (Version 1)
Quarter: 2020Q4

REPORT INFORMATION
  Report Type: Spontaneous
  Country: US (occurrence: US)
  Receive Date: 20201009
  Receipt Date: 20201009
  Transmission Date: 20210114
  Serious: Yes (Hospitalization)
  Sender: FDA-Public Use
  Company Number: None

PATIENT
  Age: 25 Year
  Sex: Female
  Weight: 95.3 kg

DRUGS (5)
  1. DEXAMETHASONE. [Concomitant]
     Active Substance: DEXAMETHASONE
     Dates: start: 20201007
  2. GUAIFENESIN. [Concomitant]
     Active Substance: GUAIFENESIN
     Dates: start: 20201005
  3. REMDESIVIR. [Suspect]
     Active Substance: REMDESIVIR
     Indication: COVID-19
     Route: 042
     Dates: start: 20201007, end: 20201009
  4. ENOXAPARIN [Concomitant]
     Active Substance: ENOXAPARIN
     Dates: start: 20201005
  5. LIDOCAINE PATCH [Concomitant]
     Active Substance: LIDOCAINE
     Dates: start: 20201005

REACTIONS (1)
  - Liver function test increased [None]

NARRATIVE: CASE EVENT DATE: 20201009
